FAERS Safety Report 7085846-6 (Version None)
Quarter: 2010Q4

REPORT INFORMATION
  Report Type: 
  Country: None (occurrence: None)
  Receive Date: 20101105
  Receipt Date: 20101027
  Transmission Date: 20110411
  Serious: Yes (Other)
  Sender: FDA-Public Use
  Company Number: US-ROCHE-737464

PATIENT
  Age: 69 Year
  Sex: Female
  Weight: 49.9 kg

DRUGS (4)
  1. BONIVA [Suspect]
     Indication: OSTEOPOROSIS
     Route: 042
     Dates: start: 20091101
  2. LISINOPRIL [Concomitant]
  3. TIMOPTIC [Concomitant]
  4. BOTOX [Concomitant]
     Dosage: FORM: INJECTION

REACTIONS (3)
  - MYALGIA [None]
  - TORTICOLLIS [None]
  - UVEITIS [None]
